FAERS Safety Report 25428679 (Version 2)
Quarter: 2025Q3

REPORT INFORMATION
  Report Type: Spontaneous
  Country: US (occurrence: US)
  Receive Date: 20250612
  Receipt Date: 20250728
  Transmission Date: 20251020
  Serious: No
  Sender: MYLAN
  Company Number: US-MYLANLABS-2025M1046945

PATIENT
  Age: 66 Year
  Sex: Male

DRUGS (4)
  1. LIPITOR [Suspect]
     Active Substance: ATORVASTATIN CALCIUM
     Indication: Product used for unknown indication
  2. TESTOPEL [Suspect]
     Active Substance: TESTOSTERONE
     Indication: Blood testosterone decreased
  3. TESTOPEL [Suspect]
     Active Substance: TESTOSTERONE
  4. ALCOHOL [Suspect]
     Active Substance: ALCOHOL
     Indication: Product used for unknown indication

REACTIONS (1)
  - Metabolic dysfunction-associated liver disease [Not Recovered/Not Resolved]

NARRATIVE: CASE EVENT DATE: 20220101
